FAERS Safety Report 9553748 (Version 1)
Quarter: 2013Q3

REPORT INFORMATION
  Report Type: Spontaneous
  Country: NL (occurrence: None)
  Receive Date: 20130923
  Receipt Date: 20130923
  Transmission Date: 20140515
  Serious: Yes (Other)
  Sender: FDA-Public Use
  Company Number: SYM-2013-10833

PATIENT
  Age: 51 Year
  Sex: Male

DRUGS (1)
  1. WELLBUTRIN XR [Suspect]
     Indication: DEPRESSION
     Route: 048
     Dates: start: 20130708

REACTIONS (1)
  - Mastitis [None]
